FAERS Safety Report 9966267 (Version 1)
Quarter: 2014Q1

REPORT INFORMATION
  Report Type: Report from Study
  Country: US (occurrence: US)
  Receive Date: 20140305
  Receipt Date: 20140305
  Transmission Date: 20141002
  Serious: No
  Sender: FDA-Public Use
  Company Number: US-ABBVIE-13P-163-1121038-00

PATIENT
  Age: 61 Year
  Sex: Male

DRUGS (7)
  1. HUMIRA [Suspect]
     Indication: RHEUMATOID ARTHRITIS
     Dates: start: 201308
  2. LANTUS [Concomitant]
     Indication: DIABETES MELLITUS
  3. HUMALOG [Concomitant]
     Indication: DIABETES MELLITUS
  4. METFORMIN [Concomitant]
     Indication: DIABETES MELLITUS
  5. SIMVASTATIN [Concomitant]
     Indication: BLOOD CHOLESTEROL INCREASED
  6. LEVOTHYROXINE [Concomitant]
     Indication: HYPOTHYROIDISM
  7. AZATHIOPRINE [Concomitant]
     Indication: RHEUMATOID ARTHRITIS

REACTIONS (1)
  - Injection site pain [Not Recovered/Not Resolved]
